FAERS Safety Report 8065215-2 (Version None)
Quarter: 2012Q1

REPORT INFORMATION
  Report Type: 
  Country: None (occurrence: None)
  Receive Date: 20120124
  Receipt Date: 20120116
  Transmission Date: 20120608
  Serious: Yes (Other)
  Sender: FDA-Public Use
  Company Number: FR-JNJFOC-20120108088

PATIENT
  Sex: Male

DRUGS (2)
  1. STELARA [Suspect]
     Indication: PSORIASIS
     Route: 058
     Dates: start: 20111010, end: 20111101
  2. DAIVOBET [Concomitant]
     Route: 003
     Dates: start: 20111010

REACTIONS (2)
  - RASH PUSTULAR [None]
  - PSORIASIS [None]
